FAERS Safety Report 10033353 (Version 4)
Quarter: 2014Q2

REPORT INFORMATION
  Report Type: Spontaneous
  Country: US (occurrence: US)
  Receive Date: 20140325
  Receipt Date: 20140619
  Transmission Date: 20141212
  Serious: Yes (Other)
  Sender: FDA-Public Use
  Company Number: US-ROCHE-1299854

PATIENT
  Sex: Male

DRUGS (3)
  1. ERIVEDGE [Suspect]
     Indication: BASAL CELL CARCINOMA
     Route: 048
     Dates: start: 20130817
  2. ERIVEDGE [Suspect]
     Route: 048
     Dates: start: 20130820
  3. BENADRYL (UNITED STATES) [Concomitant]
     Route: 065

REACTIONS (7)
  - Eating disorder [Unknown]
  - Dysgeusia [Unknown]
  - Musculoskeletal stiffness [Unknown]
  - Insomnia [Unknown]
  - Weight decreased [Unknown]
  - Ageusia [Not Recovered/Not Resolved]
  - Decreased appetite [Unknown]
